FAERS Safety Report 10237750 (Version 1)
Quarter: 2014Q2

REPORT INFORMATION
  Report Type: Spontaneous
  Country: US (occurrence: None)
  Receive Date: 20140612
  Receipt Date: 20140612
  Transmission Date: 20141212
  Serious: Yes (Hospitalization)
  Sender: FDA-Public Use
  Company Number: None

PATIENT
  Age: 79 Year
  Sex: Male
  Weight: 88.5 kg

DRUGS (14)
  1. OFATUMAMAB [Suspect]
     Indication: CHRONIC LYMPHOCYTIC LEUKAEMIA
     Route: 042
     Dates: start: 20130514, end: 20140407
  2. ALEMTUZUMAB [Suspect]
     Indication: CHRONIC LYMPHOCYTIC LEUKAEMIA
     Route: 058
     Dates: start: 20130909, end: 20140505
  3. ALBUTEROL [Concomitant]
  4. AMBIEN [Concomitant]
  5. ASPIRIN [Concomitant]
  6. BACTRIM DA [Concomitant]
  7. FINASTERIDE [Concomitant]
  8. GLIPIZIDE [Concomitant]
  9. LIDOCAINE/MAALOX/DIPHENHYDRAMINE [Concomitant]
  10. LORAZEPAM [Concomitant]
  11. PROBIOTICS [Concomitant]
  12. TERAZOSIN [Concomitant]
  13. VALGANCICLOVIR [Concomitant]
  14. ZOLOFT [Concomitant]

REACTIONS (3)
  - Gallbladder disorder [None]
  - Cholangitis [None]
  - Bacterial infection [None]
